FAERS Safety Report 14755329 (Version 6)
Quarter: 2018Q4

REPORT INFORMATION
  Report Type: Report from Study
  Country: FR (occurrence: FR)
  Receive Date: 20180413
  Receipt Date: 20181005
  Transmission Date: 20190204
  Serious: Yes (Life-Threatening, Other)
  Sender: FDA-Public Use
  Company Number: FR-ROCHE-2106028

PATIENT
  Age: 67 Year
  Sex: Female

DRUGS (16)
  1. BEVACIZUMAB. [Suspect]
     Active Substance: BEVACIZUMAB
     Dosage: MAINTAINANCE TREATMENT ON DAY 1
     Route: 042
     Dates: start: 20180315, end: 20180718
  2. CARBOPLATIN. [Suspect]
     Active Substance: CARBOPLATIN
     Indication: OVARIAN CANCER
     Dosage: AREA UNDER THE CONCENTRATION CURVE (AUC) 5 ON DAY 01?DATE OF MOST RECENT DOSE PRIOR TO EVENT ONSET O
     Route: 042
     Dates: start: 20180315
  3. BICARBONATE (SODIUM BICARBONATE) [Concomitant]
     Active Substance: SODIUM BICARBONATE
  4. AMLOR [Concomitant]
     Active Substance: AMLODIPINE BESYLATE
     Route: 065
  5. ATEZOLIZUMAB. [Suspect]
     Active Substance: ATEZOLIZUMAB
     Indication: OVARIAN CANCER
     Dosage: INDUCTION TREATMENT ON DAY 1 AND DAY 15 FOR 6 CYCLES?DATE OF MOST RECENT DOSE PRIOR TO EVENT ON 29/M
     Route: 042
     Dates: start: 20180315
  6. VENLAFAXINE [Concomitant]
     Active Substance: VENLAFAXINE HYDROCHLORIDE
  7. ZOPHREN [Concomitant]
     Active Substance: ONDANSETRON
  8. BEVACIZUMAB. [Suspect]
     Active Substance: BEVACIZUMAB
     Indication: OVARIAN CANCER
     Dosage: INDUCTION TREATMENT ON DAY 1 AND DAY 15?DATE OF MOST RECENT DOSE PRIOR TO EVENT ONSET ON 29/MAR/2018
     Route: 042
     Dates: start: 20180315
  9. BEVACIZUMAB. [Suspect]
     Active Substance: BEVACIZUMAB
     Route: 042
     Dates: start: 20180808
  10. LEVOTHYROX [Concomitant]
     Active Substance: LEVOTHYROXINE
  11. EMEND [Concomitant]
     Active Substance: APREPITANT
  12. CAELYX [Suspect]
     Active Substance: DOXORUBICIN HYDROCHLORIDE
     Route: 042
     Dates: start: 20180808
  13. ATEZOLIZUMAB. [Suspect]
     Active Substance: ATEZOLIZUMAB
     Dosage: MAINTAINANCE TREATMENT ON DAY 1
     Route: 042
     Dates: start: 20180315
  14. CAELYX [Suspect]
     Active Substance: DOXORUBICIN HYDROCHLORIDE
     Indication: OVARIAN CANCER
     Dosage: ON DAY 1?DATE OF MOST RECENT DOSE PRIOR TO EVENT ONSET ON 15/MAR/2018
     Route: 042
     Dates: start: 20180315, end: 20180718
  15. PRIMPERAN [Concomitant]
     Active Substance: METOCLOPRAMIDE HYDROCHLORIDE
  16. DOLIPRANE [Concomitant]
     Active Substance: ACETAMINOPHEN

REACTIONS (4)
  - Thrombocytopenia [Recovered/Resolved]
  - Neutropenia [Recovered/Resolved]
  - Neutropenia [Recovered/Resolved]
  - Thrombocytopenia [Recovered/Resolved]

NARRATIVE: CASE EVENT DATE: 20180330
